FAERS Safety Report 4764768-7 (Version None)
Quarter: 2005Q3

REPORT INFORMATION
  Report Type: 
  Country: None (occurrence: None)
  Receive Date: 20050907
  Receipt Date: 20050825
  Transmission Date: 20060218
  Serious: Yes (Other)
  Sender: FDA-Public Use
  Company Number: S05-USA-04144-01

PATIENT
  Age: 75 Year
  Sex: Male

DRUGS (9)
  1. NAMENDA [Suspect]
     Indication: AMNESIA
     Dosage: 5 MG QD PO
     Route: 048
     Dates: start: 20050501, end: 20050101
  2. NAMENDA [Suspect]
     Indication: AMNESIA
     Dosage: 5 MG BID PO
     Route: 048
     Dates: start: 20050101, end: 20050101
  3. NAMENDA [Suspect]
     Indication: AMNESIA
     Dosage: 15 MG QD PO
     Route: 048
     Dates: start: 20050101, end: 20050101
  4. NAMENDA [Suspect]
     Indication: AMNESIA
     Dosage: 10 MG BID PO
     Route: 048
     Dates: start: 20050101
  5. ARICEPT [Concomitant]
  6. LISINOPRIL [Concomitant]
  7. VYTORIN [Concomitant]
  8. METAMUCIL (PSYLLIUM) [Concomitant]
  9. GLUCOSAMINE [Concomitant]

REACTIONS (8)
  - DRUG INEFFECTIVE [None]
  - DYSPHONIA [None]
  - GAIT DISTURBANCE [None]
  - GASTROOESOPHAGEAL REFLUX DISEASE [None]
  - HEART RATE DECREASED [None]
  - NERVOUS SYSTEM DISORDER [None]
  - PARKINSON'S DISEASE [None]
  - SPEECH DISORDER [None]
